FAERS Safety Report 7243586-4 (Version None)
Quarter: 2011Q1

REPORT INFORMATION
  Report Type: 
  Country: None (occurrence: None)
  Receive Date: 20110125
  Receipt Date: 20110114
  Transmission Date: 20110831
  Serious: Yes (Other)
  Sender: FDA-Public Use
  Company Number: PHHY2011JP01090

PATIENT
  Age: 84 Year
  Sex: Female

DRUGS (1)
  1. TEGRETOL [Suspect]
     Route: 048

REACTIONS (5)
  - GENERALISED ERYTHEMA [None]
  - HEPATIC FUNCTION ABNORMAL [None]
  - HUMAN HERPESVIRUS 6 INFECTION [None]
  - PYREXIA [None]
  - DRUG RASH WITH EOSINOPHILIA AND SYSTEMIC SYMPTOMS [None]
